FAERS Safety Report 21222853 (Version 2)
Quarter: 2022Q3

REPORT INFORMATION
  Report Type: Spontaneous
  Country: CA (occurrence: CA)
  Receive Date: 20220817
  Receipt Date: 20220927
  Transmission Date: 20221027
  Serious: Yes (Other)
  Sender: FDA-Public Use
  Company Number: CA-PFIZER INC-202200506196

PATIENT
  Age: 60 Year
  Sex: Female
  Weight: 76 kg

DRUGS (3)
  1. ABRILADA [Suspect]
     Active Substance: ADALIMUMAB-AFZB
     Dosage: 40 MG, WEEKLY
     Route: 058
     Dates: start: 202204
  2. HUMIRA [Concomitant]
     Active Substance: ADALIMUMAB
     Dosage: UNK
  3. METHOTREXATE [Concomitant]
     Active Substance: METHOTREXATE
     Dosage: 1 DF DOSAGE INFO: UNKNOWN
     Route: 065

REACTIONS (7)
  - Condition aggravated [Unknown]
  - Eyelid operation [Unknown]
  - Therapeutic product effect incomplete [Unknown]
  - Malaise [Unknown]
  - Rash [Not Recovered/Not Resolved]
  - Migraine [Not Recovered/Not Resolved]
  - Anal fissure [Unknown]

NARRATIVE: CASE EVENT DATE: 20220101
